FAERS Safety Report 21146942 (Version 4)
Quarter: 2023Q1

REPORT INFORMATION
  Report Type: Spontaneous
  Country: US (occurrence: US)
  Receive Date: 20220729
  Receipt Date: 20230210
  Transmission Date: 20230418
  Serious: No
  Sender: FDA-Public Use
  Company Number: US-KARYOPHARM-2022KPT000763

PATIENT

DRUGS (13)
  1. XPOVIO [Suspect]
     Active Substance: SELINEXOR
     Indication: Plasma cell myeloma
     Dosage: 100 MG, WEEKLY
     Route: 048
     Dates: start: 20220531, end: 20220707
  2. XPOVIO [Suspect]
     Active Substance: SELINEXOR
     Dosage: 100 MG, WEEKLY
     Route: 048
     Dates: start: 20221012
  3. POMALYST [Concomitant]
     Active Substance: POMALIDOMIDE
     Dosage: UNK
     Dates: start: 2022, end: 2022
  4. POMALYST [Concomitant]
     Active Substance: POMALIDOMIDE
     Dosage: 3 MG
     Dates: start: 20221012
  5. EMPLICITI [Concomitant]
     Active Substance: ELOTUZUMAB
  6. ACETAMINOPHEN\HYDROCODONE [Concomitant]
     Active Substance: ACETAMINOPHEN\HYDROCODONE
  7. LASIX [Concomitant]
     Active Substance: FUROSEMIDE
  8. MELOXICAM [Concomitant]
     Active Substance: MELOXICAM
  9. POTASSIUM CHLORIDE [Concomitant]
     Active Substance: POTASSIUM CHLORIDE
  10. BACTRIM [Concomitant]
     Active Substance: SULFAMETHOXAZOLE\TRIMETHOPRIM
  11. SYNTHROID [Concomitant]
     Active Substance: LEVOTHYROXINE SODIUM
  12. TRAZODONE [Concomitant]
     Active Substance: TRAZODONE HYDROCHLORIDE
  13. ZOFRAN [Concomitant]
     Active Substance: ONDANSETRON HYDROCHLORIDE

REACTIONS (5)
  - Arthralgia [Unknown]
  - Full blood count decreased [Unknown]
  - Diarrhoea [Not Recovered/Not Resolved]
  - Dizziness [Unknown]
  - Thrombocytopenia [Unknown]

NARRATIVE: CASE EVENT DATE: 20220101
